FAERS Safety Report 13256131 (Version 1)
Quarter: 2017Q1

REPORT INFORMATION
  Report Type: Spontaneous
  Country: ZA (occurrence: ZA)
  Receive Date: 20170221
  Receipt Date: 20170221
  Transmission Date: 20170428
  Serious: Yes (Hospitalization, Other)
  Sender: FDA-Public Use
  Company Number: ZA-PFIZER INC-2017069055

PATIENT
  Age: 76 Year
  Sex: Female

DRUGS (5)
  1. CRESTOR [Concomitant]
     Active Substance: ROSUVASTATIN CALCIUM
     Indication: HYPERCHOLESTEROLAEMIA
     Dosage: 5 MG,
     Route: 048
     Dates: start: 20160816
  2. ESCITALOPRAM [Concomitant]
     Active Substance: ESCITALOPRAM OXALATE
     Indication: ANTIDEPRESSANT THERAPY
     Dosage: 10 MG,
     Route: 048
     Dates: start: 20160816
  3. NEXIFLUX [Concomitant]
     Indication: ULCER
     Dosage: 40 MG, UNK
     Route: 048
     Dates: start: 20160816
  4. CELEBREX [Suspect]
     Active Substance: CELECOXIB
     Indication: PAIN
     Dosage: 200 MG,
     Route: 048
     Dates: start: 20160816
  5. ELTROXIN [Concomitant]
     Active Substance: LEVOTHYROXINE
     Indication: HYPOTHYROIDISM
     Dosage: 100 UG,
     Route: 048
     Dates: start: 20160816

REACTIONS (3)
  - Gastric ulcer [Unknown]
  - Hepatobiliary disease [Unknown]
  - Kidney infection [Recovered/Resolved]
